FAERS Safety Report 5485517-3 (Version None)
Quarter: 2007Q4

REPORT INFORMATION
  Report Type: 
  Country: None (occurrence: None)
  Receive Date: 20071010
  Receipt Date: 20071010
  Transmission Date: 20080405
  Serious: Yes (Death)
  Sender: FDA-Public Use
  Company Number: None

PATIENT
  Sex: Female
  Weight: 72.5755 kg

DRUGS (2)
  1. MISOPROSTOL [Suspect]
     Indication: LABOUR INDUCTION
     Dosage: 100 MCG  ONE TIME  PO
     Route: 048
     Dates: start: 20050201, end: 20050201
  2. MISOPROSTOL [Suspect]
     Indication: LABOUR INDUCTION
     Dosage: 50 MCG  ONE TIME  PO
     Route: 048
     Dates: start: 20050202, end: 20050202

REACTIONS (4)
  - ABNORMAL LABOUR [None]
  - APGAR SCORE LOW [None]
  - DEATH NEONATAL [None]
  - FOETAL HEART RATE ABNORMAL [None]
